FAERS Safety Report 16443487 (Version 1)
Quarter: 2019Q2

REPORT INFORMATION
  Report Type: Spontaneous
  Country: KR (occurrence: KR)
  Receive Date: 20190618
  Receipt Date: 20190618
  Transmission Date: 20190711
  Serious: Yes (Other)
  Sender: FDA-Public Use
  Company Number: KR-ROCHE-2336833

PATIENT
  Sex: Female

DRUGS (9)
  1. TAMOXIFEN [Concomitant]
     Active Substance: TAMOXIFEN
     Route: 065
     Dates: start: 200803, end: 201301
  2. ERIBULIN [Concomitant]
     Active Substance: ERIBULIN
     Route: 065
     Dates: start: 20180503, end: 20180831
  3. FASLODEX [Concomitant]
     Active Substance: FULVESTRANT
  4. XELODA [Suspect]
     Active Substance: CAPECITABINE
     Indication: BREAST CANCER RECURRENT
     Route: 048
     Dates: start: 20170512, end: 20180406
  5. DOCETAXEL. [Concomitant]
     Active Substance: DOCETAXEL
     Route: 065
     Dates: start: 20161013, end: 20170209
  6. LETROZOLE. [Concomitant]
     Active Substance: LETROZOLE
     Route: 065
     Dates: start: 20170328, end: 20170511
  7. PALBOCICLIB [Concomitant]
     Active Substance: PALBOCICLIB
  8. GEMCITABINE [Concomitant]
     Active Substance: GEMCITABINE\GEMCITABINE HYDROCHLORIDE
  9. PACLITAXEL. [Concomitant]
     Active Substance: PACLITAXEL

REACTIONS (1)
  - Metastases to central nervous system [Unknown]
